FAERS Safety Report 9278905 (Version 1)
Quarter: 2013Q2

REPORT INFORMATION
  Report Type: Spontaneous
  Country: GB (occurrence: None)
  Receive Date: 20130501
  Receipt Date: 20130501
  Transmission Date: 20140414
  Serious: Yes (Other)
  Sender: FDA-Public Use
  Company Number: AUR-APL-201303506

PATIENT
  Age: 32 Year
  Sex: Male
  Weight: 96.3 kg

DRUGS (4)
  1. RIBAVIRIN (RIBAVIRIN) [Suspect]
     Indication: HEPATITIS C
     Route: 048
     Dates: start: 20130121, end: 20130410
  2. FELODIPINE [Suspect]
     Indication: HYPERTENSION
     Dates: start: 20130320, end: 20130410
  3. PEGYLATED INTERFERON [Suspect]
     Indication: HEPATITIS C
     Dosage: (180 MCG), SUBCUTANEOUS
     Dates: start: 20130121, end: 20130410
  4. TELAPREVIR (TELAPREVIR) [Suspect]
     Indication: HEPATITIS C
     Dosage: (750 MG, 3 IN D), ORAL
     Dates: start: 20130225, end: 20130410

REACTIONS (2)
  - Drug interaction [None]
  - Renal impairment [None]
